FAERS Safety Report 8565261-6 (Version None)
Quarter: 2012Q3

REPORT INFORMATION
  Report Type: 
  Country: None (occurrence: None)
  Receive Date: 20120803
  Receipt Date: 20111122
  Transmission Date: 20120928
  Serious: Yes (Hospitalization)
  Sender: FDA-Public Use
  Company Number: US-GLAXOSMITHKLINE-Z0012316A

PATIENT
  Age: 72 Year
  Sex: Male
  Weight: 75.8 kg

DRUGS (6)
  1. PAZOPANIB [Suspect]
     Indication: NEOPLASM
     Dosage: 800MG PER DAY
     Route: 048
     Dates: start: 20110824
  2. TOPOTECAN [Suspect]
     Indication: NEOPLASM
     Dosage: 2.5MG CYCLIC
     Route: 048
     Dates: start: 20110907
  3. SODIUM CHLORIDE [Concomitant]
     Indication: DEHYDRATION
     Dosage: 1000ML SINGLE DOSE
     Route: 042
     Dates: start: 20111015, end: 20111015
  4. DIOVAN [Concomitant]
     Indication: HYPERTENSION
     Dosage: 160MG PER DAY
     Route: 048
     Dates: start: 20111015
  5. ZOSYN [Concomitant]
     Indication: INFECTION
     Dosage: 4.5G FOUR TIMES PER DAY
     Route: 042
     Dates: start: 20111017, end: 20111020
  6. FRAGMIN [Concomitant]
     Indication: THROMBOSIS PROPHYLAXIS
     Dosage: 5000UNIT PER DAY
     Route: 058
     Dates: start: 20111015

REACTIONS (1)
  - HEPATIC ENZYME INCREASED [None]
